FAERS Safety Report 6745883-5 (Version None)
Quarter: 2010Q2

REPORT INFORMATION
  Report Type: 
  Country: None (occurrence: None)
  Receive Date: 20100528
  Receipt Date: 20100528
  Transmission Date: 20101027
  Serious: Yes (Life-Threatening, Hospitalization)
  Sender: FDA-Public Use
  Company Number: None

PATIENT
  Age: 10 Year
  Sex: Female
  Weight: 52.1637 kg

DRUGS (3)
  1. CHILDREN'S MOTRIN [Suspect]
     Indication: HEADACHE
     Dosage: 3TSP 4HRS PO
     Route: 048
     Dates: start: 20100505, end: 20100516
  2. CHILDREN'S MOTRIN [Suspect]
     Indication: BACK PAIN
  3. CHILDREN'S MOTRIN [Suspect]
     Indication: PYREXIA

REACTIONS (9)
  - BACK PAIN [None]
  - FATIGUE [None]
  - HEADACHE [None]
  - HUNGER [None]
  - MALAISE [None]
  - OROPHARYNGEAL PAIN [None]
  - PNEUMONIA [None]
  - PRODUCT QUALITY ISSUE [None]
  - VOMITING [None]
